FAERS Safety Report 22136674 (Version 3)
Quarter: 2023Q2

REPORT INFORMATION
  Report Type: Spontaneous
  Country: US (occurrence: US)
  Receive Date: 20230324
  Receipt Date: 20230529
  Transmission Date: 20230721
  Serious: No
  Sender: FDA-Public Use
  Company Number: US-SA-SAC20230324000295

PATIENT
  Age: 66 Year
  Sex: Male

DRUGS (9)
  1. FLOMAX [Suspect]
     Active Substance: TAMSULOSIN HYDROCHLORIDE
     Indication: Prostate cancer
     Dosage: UNK
     Route: 065
     Dates: start: 20230207
  2. ORGOVYX [Suspect]
     Active Substance: RELUGOLIX
     Indication: Prostate cancer
     Dosage: 360 MG
     Dates: start: 20230206
  3. ORGOVYX [Suspect]
     Active Substance: RELUGOLIX
     Dosage: 120 MG, QD
     Dates: start: 20230207
  4. ORGOVYX [Suspect]
     Active Substance: RELUGOLIX
     Dosage: UNK
  5. HYOSCYAMINE SULFATE [Concomitant]
     Active Substance: HYOSCYAMINE SULFATE
     Dosage: UNK
  6. METHENAMINE [Concomitant]
     Active Substance: METHENAMINE
     Dosage: UNK
  7. METHYLENE BLUE [Concomitant]
     Active Substance: METHYLENE BLUE
     Dosage: UNK
  8. PHENYL SALICYLATE [Concomitant]
     Active Substance: PHENYL SALICYLATE
     Dosage: UNK
  9. URIBEL [Concomitant]
     Active Substance: HYOSCYAMINE SULFATE\METHENAMINE\METHYLENE BLUE\PHENYL SALICYLATE\SODIUM PHOSPHATE, MONOBASIC, MONOHY
     Dosage: UNK

REACTIONS (9)
  - Blood pressure decreased [Unknown]
  - Flushing [Unknown]
  - Dysuria [Unknown]
  - Hyperhidrosis [Unknown]
  - Urinary tract disorder [Unknown]
  - Night sweats [Unknown]
  - Hot flush [Unknown]
  - Nasopharyngitis [Unknown]
  - Blood glucose increased [Unknown]

NARRATIVE: CASE EVENT DATE: 20230307
